FAERS Safety Report 6209701-6 (Version None)
Quarter: 2009Q2

REPORT INFORMATION
  Report Type: 
  Country: None (occurrence: None)
  Receive Date: 20090529
  Receipt Date: 20090529
  Transmission Date: 20091009
  Serious: No
  Sender: FDA-Public Use
  Company Number: None

PATIENT
  Age: 67 Year
  Sex: Female
  Weight: 70.3075 kg

DRUGS (5)
  1. TEMODAR [Suspect]
     Indication: GLIOBLASTOMA MULTIFORME
     Dosage: 140 MG PO DAILY
     Route: 048
     Dates: start: 20090413, end: 20090511
  2. PACLITAXEL POLIGLUMEX [Suspect]
     Dosage: 87 MG IV WEEKLY
     Dates: start: 20090413
  3. PACLITAXEL POLIGLUMEX [Suspect]
     Dosage: 87 MG IV WEEKLY
     Dates: start: 20090420
  4. PACLITAXEL POLIGLUMEX [Suspect]
     Dosage: 87 MG IV WEEKLY
     Dates: start: 20090427
  5. PACLITAXEL POLIGLUMEX [Suspect]
     Dosage: 87 MG IV WEEKLY
     Dates: start: 20090504

REACTIONS (3)
  - CONTUSION [None]
  - EPISTAXIS [None]
  - PANCYTOPENIA [None]
